FAERS Safety Report 17417903 (Version 3)
Quarter: 2020Q1

REPORT INFORMATION
  Report Type: Spontaneous
  Country: US (occurrence: US)
  Receive Date: 20200213
  Receipt Date: 20200331
  Transmission Date: 20200409
  Serious: Yes (Death, Other)
  Sender: FDA-Public Use
  Company Number: US-AMGEN INC.-USASP2020023913

PATIENT
  Age: 54 Year
  Sex: Female
  Weight: 66.67 kg

DRUGS (20)
  1. FLEXERIL [CEFIXIME] [Concomitant]
     Active Substance: CEFIXIME
     Dosage: 10 MILLIGRAM, AS NECESSARY
     Dates: start: 2006
  2. SUMATRIPTAN. [Concomitant]
     Active Substance: SUMATRIPTAN
     Dosage: 6 MILLIGRAM, AS NECESSARY
     Dates: start: 20160708
  3. CETIRIZINE [Concomitant]
     Active Substance: CETIRIZINE HYDROCHLORIDE
     Dosage: 10 MILLIGRAM, AS NECESSARY
     Dates: start: 2016
  4. BOTOX [Concomitant]
     Active Substance: ONABOTULINUMTOXINA
     Dosage: UNK
     Dates: start: 2016, end: 2018
  5. ZOFRAN [Concomitant]
     Active Substance: ONDANSETRON HYDROCHLORIDE
     Dosage: 8 MILLIGRAM, AS NECESSARY
     Dates: start: 2013
  6. MIDRIN [DICHLORALPHENAZONE;ISOMETHEPTENE MUCATE;PARACETAMOL] [Concomitant]
     Active Substance: ACETAMINOPHEN\DICHLORALPHENAZONE\ISOMETHEPTENE
     Dosage: UNK UNK, AS NECESSARY
     Dates: start: 20160315
  7. ALBUTEROL HFA [Concomitant]
     Active Substance: ALBUTEROL SULFATE
     Dosage: 2 PUFFS Q 4 HS AS NEEDED
     Dates: start: 20160202
  8. PROAIR HFA [Concomitant]
     Active Substance: ALBUTEROL SULFATE
     Dosage: 2 PUFFS Q 4 HS AS NEEDED
     Dates: start: 20160202
  9. DOXEPIN [Concomitant]
     Active Substance: DOXEPIN
     Dosage: 10 MG TO 50 MG TO 100 MG
     Dates: start: 20160308, end: 201903
  10. TYLENOL [Concomitant]
     Active Substance: ACETAMINOPHEN
     Dosage: UNK UNK, AS NECESSARY
  11. VERAPAMIL [Concomitant]
     Active Substance: VERAPAMIL HYDROCHLORIDE
     Dosage: 120 MG TO 240 MG TWICE DAILY TO 360 MG EACH DAY THEN BACK TO 240 MG TWICE DAILY
     Dates: start: 20160318, end: 201811
  12. AIMOVIG [Suspect]
     Active Substance: ERENUMAB-AOOE
     Indication: MIGRAINE
     Dosage: 140 MILLIGRAM, QMO
     Route: 058
     Dates: start: 20180830
  13. EPIPEN [Concomitant]
     Active Substance: EPINEPHRINE
     Dosage: 0.3 MILLIGRAM, AS NECESSARY
     Dates: start: 20160202
  14. TOPIRAMATE. [Concomitant]
     Active Substance: TOPIRAMATE
     Dosage: 25 TO 50 MG EACH DAY (25 TO 50 MG EACH DAY, STARTED PRIOR TO 2016 TO SEP/2017 TO 09/JAN/2019)
     Dates: end: 20190109
  15. SYMBICORT [Concomitant]
     Active Substance: BUDESONIDE\FORMOTEROL FUMARATE DIHYDRATE
     Dosage: 160/4.5 2 PUFFS TWICE A DAY PRN (TAKING DURING RAINY WEATHER)
     Dates: start: 20190716
  16. FIORICET [Concomitant]
     Active Substance: ACETAMINOPHEN\BUTALBITAL\CAFFEINE
     Dosage: 50/300/40MG  AS NECESSARY
     Dates: start: 20170301
  17. RELPAX [Concomitant]
     Active Substance: ELETRIPTAN HYDROBROMIDE
     Dosage: 40 MILLIGRAM, AS NECESSARY
     Dates: start: 2013
  18. HYDROXYZINE [Concomitant]
     Active Substance: HYDROXYZINE HYDROCHLORIDE
     Dosage: 25 MILLIGRAM, AS NECESSARY
     Dates: start: 2017, end: 2018
  19. VENTOLIN [Concomitant]
     Active Substance: ALBUTEROL SULFATE
     Dosage: 2 PUFFS Q 4 HS AS NEEDED
     Dates: start: 20160202
  20. FLUTICASONE. [Concomitant]
     Active Substance: FLUTICASONE
     Dosage: UNK UNK, AS NECESSARY (STARTED PRIOR TO 2016)
     Dates: start: 2016

REACTIONS (1)
  - Breast cancer [Fatal]

NARRATIVE: CASE EVENT DATE: 201908
